FAERS Safety Report 11994377 (Version 3)
Quarter: 2016Q4

REPORT INFORMATION
  Report Type: Report from Study
  Country: US (occurrence: US)
  Receive Date: 20160203
  Receipt Date: 20161012
  Transmission Date: 20170206
  Serious: Yes (Hospitalization)
  Sender: FDA-Public Use
  Company Number: US-JNJFOC-20151204470

PATIENT
  Age: 61 Year
  Sex: Male
  Weight: 63 kg

DRUGS (9)
  1. IMBRUVICA [Suspect]
     Active Substance: IBRUTINIB
     Indication: CHRONIC LYMPHOCYTIC LEUKAEMIA
     Route: 048
     Dates: start: 201602
  2. IMBRUVICA [Suspect]
     Active Substance: IBRUTINIB
     Indication: LYMPHOCYTIC LEUKAEMIA
     Route: 048
     Dates: start: 20150917, end: 20151118
  3. LIPITOR [Concomitant]
     Active Substance: ATORVASTATIN CALCIUM
  4. IMBRUVICA [Suspect]
     Active Substance: IBRUTINIB
     Indication: LYMPHOCYTIC LEUKAEMIA
     Route: 048
     Dates: start: 201602
  5. LISINOPRIL. [Concomitant]
     Active Substance: LISINOPRIL
  6. GABAPENTIN. [Concomitant]
     Active Substance: GABAPENTIN
  7. ALLOPURINOL. [Concomitant]
     Active Substance: ALLOPURINOL
  8. COREG [Concomitant]
     Active Substance: CARVEDILOL
  9. IMBRUVICA [Suspect]
     Active Substance: IBRUTINIB
     Indication: CHRONIC LYMPHOCYTIC LEUKAEMIA
     Route: 048
     Dates: start: 20150917, end: 20151118

REACTIONS (21)
  - Neutropenia [Recovered/Resolved]
  - Anaemia [Unknown]
  - Viral infection [Recovered/Resolved]
  - Night sweats [Unknown]
  - Anxiety [Unknown]
  - Weight decreased [Unknown]
  - Oral disorder [Unknown]
  - Thrombocytopenia [Recovering/Resolving]
  - Pharyngitis [Not Recovered/Not Resolved]
  - Tooth abscess [Recovered/Resolved]
  - Campylobacter infection [Recovered/Resolved]
  - Odynophagia [Not Recovered/Not Resolved]
  - Malnutrition [Unknown]
  - Disease progression [Unknown]
  - Stomatitis [Recovered/Resolved]
  - Immune system disorder [Not Recovered/Not Resolved]
  - Back pain [Unknown]
  - Candida infection [Recovered/Resolved]
  - Memory impairment [Unknown]
  - Hyperhidrosis [Unknown]
  - Fatigue [Unknown]

NARRATIVE: CASE EVENT DATE: 20151114
